FAERS Safety Report 14332987 (Version 1)
Quarter: 2017Q4

REPORT INFORMATION
  Report Type: Spontaneous
  Country: US (occurrence: US)
  Receive Date: 20171228
  Receipt Date: 20171228
  Transmission Date: 20180321
  Serious: Yes (Other)
  Sender: FDA-Public Use
  Company Number: US-ARBOR PHARMACEUTICALS, LLC-US-2017ARB001060

PATIENT
  Sex: Male

DRUGS (1)
  1. HORIZANT [Suspect]
     Active Substance: GABAPENTIN ENACARBIL
     Indication: PRODUCT USED FOR UNKNOWN INDICATION

REACTIONS (2)
  - Mood altered [Unknown]
  - Delirium [Unknown]
